FAERS Safety Report 6731577-9 (Version None)
Quarter: 2010Q2

REPORT INFORMATION
  Report Type: 
  Country: None (occurrence: None)
  Receive Date: 20100519
  Receipt Date: 20100511
  Transmission Date: 20101027
  Serious: Yes (Hospitalization)
  Sender: FDA-Public Use
  Company Number: DK-SHIRE-SPV1-2009-02382

PATIENT

DRUGS (12)
  1. FOSRENOL [Suspect]
     Indication: HYPERPHOSPHATAEMIA
     Dosage: UNK MG, UNK
     Route: 048
     Dates: start: 20070101
  2. FOSRENOL [Suspect]
     Dosage: 750 MG, 3X/DAY:TID
     Route: 048
     Dates: start: 20090115, end: 20090605
  3. ELTROXIN [Suspect]
     Indication: THYROIDECTOMY
     Dosage: 50 TO 150 MIKROGRAM PER DAY
     Route: 048
     Dates: start: 20030101
  4. OSVAREN [Concomitant]
     Indication: HYPERPHOSPHATAEMIA
     Dosage: 435MG+235 MG, 1 UNIT 3 TIMES DAILY
     Dates: start: 20090605, end: 20090826
  5. B-COMBIN                           /00003501/ [Concomitant]
     Indication: VITAMIN SUPPLEMENTATION
     Dosage: 1 DF, 1X/DAY:QD
     Route: 048
     Dates: end: 20090916
  6. MICARDIS [Concomitant]
     Dosage: 80 MG, 1X/DAY:QD
     Route: 048
     Dates: start: 20080915, end: 20090403
  7. SELO-ZOK [Concomitant]
     Dosage: 50 MG, 1X/DAY:QD
     Dates: start: 20081110, end: 20090403
  8. VENOFER [Concomitant]
     Indication: MINERAL SUPPLEMENTATION
     Dosage: 5 ML, 1X/DAY:QD
     Route: 042
     Dates: start: 20081117, end: 20091102
  9. FOLINSYRE                          /00024201/ [Concomitant]
     Indication: VITAMIN SUPPLEMENTATION
     Dosage: 5 MG, TREE TIMES PER WEEK
     Dates: start: 20080820, end: 20090916
  10. INNOHEP                            /00889602/ [Concomitant]
     Dosage: 1000 IU, UNK
     Route: 058
     Dates: start: 20080820, end: 20090913
  11. CALCIUM [Concomitant]
     Dosage: UNK, UNK
     Dates: start: 20080825, end: 20090115
  12. RENAGEL [Concomitant]
     Dates: start: 20090101, end: 20090101

REACTIONS (5)
  - ABDOMINAL PAIN [None]
  - BLOOD THYROID STIMULATING HORMONE INCREASED [None]
  - DRUG INTERACTION [None]
  - THYROXINE DECREASED [None]
  - TRI-IODOTHYRONINE DECREASED [None]
